FAERS Safety Report 16938830 (Version 1)
Quarter: 2019Q4

REPORT INFORMATION
  Report Type: Spontaneous
  Country: US (occurrence: US)
  Receive Date: 20190828
  Receipt Date: 20190828
  Transmission Date: 20200122
  Serious: Yes (Death)
  Sender: FDA-Public Use
  Company Number: None

PATIENT
  Age: 78 Year
  Sex: Male
  Weight: 94.8 kg

DRUGS (6)
  1. PAXIL [Concomitant]
     Active Substance: PAROXETINE HYDROCHLORIDE
  2. TEMODAR [Suspect]
     Active Substance: TEMOZOLOMIDE
     Indication: ANAPLASTIC OLIGODENDROGLIOMA
     Dosage: ?          OTHER FREQUENCY:QDX5, 23D OFF;?
     Route: 048
     Dates: start: 20010820, end: 20020719
  3. DILANTIN [Concomitant]
     Active Substance: PHENYTOIN
  4. TEMODAR [Suspect]
     Active Substance: TEMOZOLOMIDE
     Indication: ANAPLASTIC OLIGODENDROGLIOMA
     Dosage: ?          OTHER FREQUENCY:QDX5 23D OFF;?
     Route: 048
     Dates: start: 20010820, end: 20020719
  5. LIPITOR [Concomitant]
     Active Substance: ATORVASTATIN CALCIUM
  6. ANZEMET [Concomitant]
     Active Substance: DOLASETRON MESYLATE

REACTIONS (5)
  - Hypoxia [None]
  - Lung infiltration [None]
  - Mental status changes [None]
  - Seizure [None]
  - Myelodysplastic syndrome [None]

NARRATIVE: CASE EVENT DATE: 20190726
